FAERS Safety Report 19034375 (Version 1)
Quarter: 2021Q1

REPORT INFORMATION
  Report Type: Other
  Country: GB (occurrence: GB)
  Receive Date: 20210320
  Receipt Date: 20210320
  Transmission Date: 20210420
  Serious: Yes (Other)
  Sender: FDA-Public Use
  Company Number: GB-MACLEODS PHARMA UK LTD-MAC2021030495

PATIENT

DRUGS (4)
  1. PAROXETINE HYDROCHLORIDE. [Concomitant]
     Active Substance: PAROXETINE HYDROCHLORIDE
     Indication: ADJUSTMENT DISORDER WITH ANXIETY
     Dosage: 20 MILLIGRAM
     Route: 048
     Dates: start: 20210301, end: 20210305
  2. ESCITALOPRAM [Suspect]
     Active Substance: ESCITALOPRAM OXALATE
     Indication: ADJUSTMENT DISORDER WITH ANXIETY
     Dosage: 10 MILLIGRAM
     Route: 048
     Dates: start: 20210218, end: 20210225
  3. EPILIM [Concomitant]
     Active Substance: VALPROATE SODIUM
     Indication: ILL-DEFINED DISORDER
     Dosage: UNK
     Route: 065
  4. PERINDOPRIL ARGININE [Concomitant]
     Active Substance: PERINDOPRIL ARGININE
     Indication: ILL-DEFINED DISORDER
     Dosage: UNK
     Route: 065

REACTIONS (1)
  - Phimosis [Recovered/Resolved]

NARRATIVE: CASE EVENT DATE: 20210222
